FAERS Safety Report 8587517-3 (Version None)
Quarter: 2012Q3

REPORT INFORMATION
  Report Type: 
  Country: None (occurrence: None)
  Receive Date: 20120810
  Receipt Date: 20070226
  Transmission Date: 20120928
  Serious: Yes (Other)
  Sender: FDA-Public Use
  Company Number: CO-PFIZER INC-2012190466

PATIENT
  Age: 75 Year
  Sex: Female

DRUGS (5)
  1. METFORMIN [Concomitant]
     Dosage: 850 MG, 1X/DAY
  2. LIPITOR [Suspect]
     Indication: DYSLIPIDAEMIA
     Dosage: 10 MG, 1X/DAY
  3. GLIBENCLAMIDE [Concomitant]
     Dosage: 5 MG, 3X/DAY
  4. ACCURETIC [Suspect]
     Indication: HYPERTENSION
     Dosage: [QUINAPRIL HYDROCHLORIDE 20MG]/ [HYDROCHLOROTHIAZIDE12.5MG], 1X/DAY
  5. GLIBENCLAMIDE [Concomitant]
     Dosage: 5 MG, 1X/DAY

REACTIONS (3)
  - PAIN IN EXTREMITY [None]
  - HYPERTENSIVE EMERGENCY [None]
  - CHEST PAIN [None]
